FAERS Safety Report 18067076 (Version 3)
Quarter: 2024Q1

REPORT INFORMATION
  Report Type: Spontaneous
  Country: US (occurrence: US)
  Receive Date: 20200724
  Receipt Date: 20240207
  Transmission Date: 20240410
  Serious: Yes (Hospitalization, Disabling, Other)
  Sender: FDA-Public Use
  Company Number: US-GILEAD-2020-0484410

PATIENT
  Age: 56 Year
  Sex: Male
  Weight: 145.13 kg

DRUGS (20)
  1. TRUVADA [Suspect]
     Active Substance: EMTRICITABINE\TENOFOVIR DISOPROXIL FUMARATE
     Indication: HIV infection
     Dosage: UNK
     Route: 048
     Dates: start: 201305, end: 20150721
  2. TRUVADA [Suspect]
     Active Substance: EMTRICITABINE\TENOFOVIR DISOPROXIL FUMARATE
     Dosage: UNK
     Route: 048
     Dates: start: 201305, end: 201309
  3. BIKTARVY [Concomitant]
     Active Substance: BICTEGRAVIR SODIUM\EMTRICITABINE\TENOFOVIR ALAFENAMIDE FUMARATE
  4. EMTRIVA [Concomitant]
     Active Substance: EMTRICITABINE
  5. ERGOCALCIFEROL [Concomitant]
     Active Substance: ERGOCALCIFEROL
  6. GABAPENTIN [Concomitant]
     Active Substance: GABAPENTIN
  7. DULOXETINE [Concomitant]
     Active Substance: DULOXETINE
  8. NORVIR [Concomitant]
     Active Substance: RITONAVIR
  9. PREZISTA [Concomitant]
     Active Substance: DARUNAVIR ETHANOLATE
  10. TRIUMEQ [Concomitant]
     Active Substance: ABACAVIR SULFATE\DOLUTEGRAVIR SODIUM\LAMIVUDINE
  11. ZIAGEN [Concomitant]
     Active Substance: ABACAVIR SULFATE
  12. OLANZAPINE [Concomitant]
     Active Substance: OLANZAPINE
  13. ONDANSETRON [Concomitant]
     Active Substance: ONDANSETRON
  14. POTASSIUM CHLORIDE [Concomitant]
     Active Substance: POTASSIUM CHLORIDE
  15. CHLORTHALIDONE [Concomitant]
     Active Substance: CHLORTHALIDONE
  16. ACYCLOVIR [Concomitant]
     Active Substance: ACYCLOVIR
  17. ASPIRIN [Concomitant]
     Active Substance: ASPIRIN
  18. RANITIDINE [Concomitant]
     Active Substance: RANITIDINE
  19. OMEPRAZOLE [Concomitant]
     Active Substance: OMEPRAZOLE
  20. LOSARTAN [Concomitant]
     Active Substance: LOSARTAN

REACTIONS (8)
  - Acute kidney injury [Not Recovered/Not Resolved]
  - Chronic kidney disease [Not Recovered/Not Resolved]
  - Nephropathy [Unknown]
  - Pain [Not Recovered/Not Resolved]
  - Emotional distress [Not Recovered/Not Resolved]
  - Depression [Not Recovered/Not Resolved]
  - Anxiety [Not Recovered/Not Resolved]
  - Mobility decreased [Not Recovered/Not Resolved]

NARRATIVE: CASE EVENT DATE: 20131101
